FAERS Safety Report 13946823 (Version 1)
Quarter: 2017Q3

REPORT INFORMATION
  Report Type: Spontaneous
  Country: US (occurrence: US)
  Receive Date: 20170907
  Receipt Date: 20170907
  Transmission Date: 20171128
  Serious: Yes (Other)
  Sender: FDA-Public Use
  Company Number: US-APOTEX-2017AP017581

PATIENT
  Sex: Female

DRUGS (24)
  1. LAMOTRIGINE. [Suspect]
     Active Substance: LAMOTRIGINE
     Indication: PETIT MAL EPILEPSY
     Route: 065
  2. METHSUXIMIDE [Suspect]
     Active Substance: METHSUXIMIDE
     Indication: PETIT MAL EPILEPSY
     Route: 065
  3. EZOGABINE [Suspect]
     Active Substance: EZOGABINE
     Dosage: 400 MG, DAILY
     Route: 065
  4. CLOBAZAM [Suspect]
     Active Substance: CLOBAZAM
  5. LAMOTRIGINE. [Suspect]
     Active Substance: LAMOTRIGINE
     Dosage: 200 MG, BID
     Route: 065
  6. PHENSUXIMIDE. [Suspect]
     Active Substance: PHENSUXIMIDE
     Indication: PETIT MAL EPILEPSY
     Route: 065
  7. RUFINAMIDE [Suspect]
     Active Substance: RUFINAMIDE
     Indication: PETIT MAL EPILEPSY
     Route: 065
  8. LACOSAMIDE. [Suspect]
     Active Substance: LACOSAMIDE
     Indication: PETIT MAL EPILEPSY
     Route: 065
  9. ZONISAMIDE. [Suspect]
     Active Substance: ZONISAMIDE
     Indication: PETIT MAL EPILEPSY
     Route: 065
  10. ETHOSUXIMIDE. [Suspect]
     Active Substance: ETHOSUXIMIDE
     Indication: PETIT MAL EPILEPSY
     Dosage: UNK
     Route: 065
  11. PHENYTOIN. [Suspect]
     Active Substance: PHENYTOIN
     Indication: PETIT MAL EPILEPSY
     Route: 065
  12. EZOGABINE [Suspect]
     Active Substance: EZOGABINE
     Indication: PETIT MAL EPILEPSY
     Dosage: 50 MG, DAILY
     Route: 065
  13. ZONISAMIDE. [Suspect]
     Active Substance: ZONISAMIDE
     Dosage: 200 MG, BID
     Route: 065
  14. ZONISAMIDE. [Suspect]
     Active Substance: ZONISAMIDE
     Dosage: 200 MG, PER DAY
     Route: 065
  15. LEVETIRACETAM. [Suspect]
     Active Substance: LEVETIRACETAM
     Indication: PETIT MAL EPILEPSY
     Route: 065
  16. DIVALPROEX SODIUM DELAYED-RELEASE TABLETS USP [Suspect]
     Active Substance: DIVALPROEX SODIUM
     Indication: PETIT MAL EPILEPSY
  17. EZOGABINE [Suspect]
     Active Substance: EZOGABINE
     Dosage: 50 MG, Q.AM
     Route: 065
  18. EZOGABINE [Suspect]
     Active Substance: EZOGABINE
     Dosage: 100 MG, Q.H.S.
     Route: 065
  19. ZONISAMIDE. [Suspect]
     Active Substance: ZONISAMIDE
     Dosage: 100 MG, PER DAY
     Route: 065
  20. ETHOSUXIMIDE. [Suspect]
     Active Substance: ETHOSUXIMIDE
     Dosage: 500 MG, TID
     Route: 065
  21. TOPIRAMATE. [Suspect]
     Active Substance: TOPIRAMATE
     Indication: PETIT MAL EPILEPSY
     Route: 065
  22. PHENOBARBITAL. [Suspect]
     Active Substance: PHENOBARBITAL
     Indication: PETIT MAL EPILEPSY
     Route: 065
  23. EZOGABINE [Suspect]
     Active Substance: EZOGABINE
     Dosage: 50 MG, AT MIDDAY
     Route: 065
  24. EZOGABINE [Suspect]
     Active Substance: EZOGABINE
     Dosage: 100 MG, TID
     Route: 065

REACTIONS (6)
  - Adverse event [Unknown]
  - Cognitive disorder [Unknown]
  - Drug ineffective [Unknown]
  - Back pain [Unknown]
  - Somnolence [Unknown]
  - Sedation [Unknown]
